FAERS Safety Report 10693876 (Version 3)
Quarter: 2015Q1

REPORT INFORMATION
  Report Type: Spontaneous
  Country: US (occurrence: US)
  Receive Date: 20150106
  Receipt Date: 20150108
  Transmission Date: 20150721
  Serious: No
  Sender: FDA-Public Use
  Company Number: US-GLAXOSMITHKLINE-A0810969A

PATIENT
  Age: 82 Year
  Sex: Female

DRUGS (4)
  1. RYTHMOL [Suspect]
     Active Substance: PROPAFENONE HYDROCHLORIDE
     Indication: PRODUCT USED FOR UNKNOWN INDICATION
     Dosage: 150 MG, TID
     Route: 048
  2. RYTHMOL SR [Suspect]
     Active Substance: PROPAFENONE HYDROCHLORIDE
     Indication: ATRIAL FIBRILLATION
     Dosage: 225 MG, BID
     Route: 048
     Dates: start: 2005
  3. PAIN PILLS (NOS) [Concomitant]
  4. VITAMINS [Concomitant]
     Active Substance: VITAMINS

REACTIONS (6)
  - Joint dislocation [Recovering/Resolving]
  - Somnolence [Unknown]
  - Upper limb fracture [Recovering/Resolving]
  - Drug dose omission [Unknown]
  - Memory impairment [Unknown]
  - Fall [Recovering/Resolving]

NARRATIVE: CASE EVENT DATE: 20141009
